FAERS Safety Report 8689630 (Version 2)
Quarter: 2013Q2

REPORT INFORMATION
  Report Type: Spontaneous
  Country: US (occurrence: US)
  Receive Date: 20120727
  Receipt Date: 20130418
  Transmission Date: 20140414
  Serious: No
  Sender: FDA-Public Use
  Company Number: US-ASTRAZENECA-2012SE05771

PATIENT
  Age: 53 Year
  Sex: Female

DRUGS (8)
  1. SEROQUEL [Suspect]
     Indication: BIPOLAR DISORDER
     Route: 048
  2. SEROQUEL [Suspect]
     Indication: BORDERLINE PERSONALITY DISORDER
     Route: 048
  3. SEROQUEL [Suspect]
     Indication: ANXIETY
     Route: 048
  4. SEROQUEL [Suspect]
     Indication: DEPRESSION
     Route: 048
  5. SEROQUEL [Suspect]
     Indication: BIPOLAR DISORDER
     Route: 048
  6. SEROQUEL [Suspect]
     Indication: BORDERLINE PERSONALITY DISORDER
     Route: 048
  7. SEROQUEL [Suspect]
     Indication: ANXIETY
     Route: 048
  8. SEROQUEL [Suspect]
     Indication: DEPRESSION
     Route: 048

REACTIONS (6)
  - Insomnia [Unknown]
  - Withdrawal syndrome [Unknown]
  - Tremor [Unknown]
  - Tremor [Unknown]
  - Muscle twitching [Unknown]
  - Drug dose omission [Unknown]
